FAERS Safety Report 8351545-3 (Version None)
Quarter: 2012Q2

REPORT INFORMATION
  Report Type: 
  Country: None (occurrence: None)
  Receive Date: 20120511
  Receipt Date: 20120502
  Transmission Date: 20120825
  Serious: Yes (Death)
  Sender: FDA-Public Use
  Company Number: US-BIOGENIDEC-2012BI010169

PATIENT
  Age: 53 Year
  Sex: Female

DRUGS (1)
  1. TYSABRI [Suspect]
     Indication: MULTIPLE SCLEROSIS
     Route: 042
     Dates: start: 20100616, end: 20111230

REACTIONS (5)
  - DRUG INEFFECTIVE [None]
  - DEATH [None]
  - MULTIPLE SCLEROSIS [None]
  - CYSTITIS [None]
  - ASTHENIA [None]
